FAERS Safety Report 16966523 (Version 3)
Quarter: 2020Q2

REPORT INFORMATION
  Report Type: Report from Study
  Country: BR (occurrence: BR)
  Receive Date: 20191028
  Receipt Date: 20200515
  Transmission Date: 20200713
  Serious: Yes (Other)
  Sender: FDA-Public Use
  Company Number: NVSC2019BR015368

PATIENT
  Sex: Female

DRUGS (1)
  1. GILENYA [Suspect]
     Active Substance: FINGOLIMOD HYDROCHLORIDE
     Indication: MULTIPLE SCLEROSIS
     Dosage: UNK
     Route: 065
     Dates: start: 20190918

REACTIONS (8)
  - Swelling face [Unknown]
  - Hypersensitivity [Recovered/Resolved]
  - Demyelination [Unknown]
  - Trigeminal neuralgia [Unknown]
  - Blister [Unknown]
  - Malaise [Unknown]
  - Peripheral swelling [Unknown]
  - Dermatitis allergic [Recovered/Resolved]
